FAERS Safety Report 25014846 (Version 1)
Quarter: 2025Q1

REPORT INFORMATION
  Report Type: Spontaneous
  Country: US (occurrence: None)
  Receive Date: 20250226
  Receipt Date: 20250226
  Transmission Date: 20250409
  Serious: Yes (Hospitalization)
  Sender: FDA-CTU
  Company Number: None

PATIENT
  Age: 67 Year
  Sex: Female

DRUGS (4)
  1. TACROLIMUS [Suspect]
     Active Substance: TACROLIMUS
     Indication: Liver transplant
     Dosage: FREQUENCY : TWICE A DAY;?
     Route: 048
     Dates: start: 20231129
  2. XIFAXAN [Concomitant]
     Active Substance: RIFAXIMIN
  3. MULTIPLE VITAMIN TABLETS [Concomitant]
  4. ACETAMINOPHEN 500MG TABLETS [Concomitant]

REACTIONS (2)
  - Illness [None]
  - Asthenia [None]
